FAERS Safety Report 9693546 (Version 1)
Quarter: 2013Q4

REPORT INFORMATION
  Report Type: Spontaneous
  Country: JP (occurrence: JP)
  Receive Date: 20131118
  Receipt Date: 20131118
  Transmission Date: 20140711
  Serious: Yes (Hospitalization)
  Sender: FDA-Public Use
  Company Number: JP-GLAXOSMITHKLINE-B0920708A

PATIENT
  Age: 63 Year
  Sex: Female
  Weight: 44 kg

DRUGS (5)
  1. LAMICTAL [Suspect]
     Indication: BIPOLAR DISORDER
     Dosage: 25MG PER DAY
     Route: 048
     Dates: start: 20130723, end: 20130805
  2. LAMICTAL [Suspect]
     Indication: BIPOLAR DISORDER
     Dosage: 50MG PER DAY
     Route: 048
     Dates: start: 20130806, end: 20130807
  3. ZYPREXA [Concomitant]
     Indication: BIPOLAR DISORDER
     Dosage: 5MG PER DAY
     Route: 065
     Dates: start: 20130723
  4. HALCION [Concomitant]
     Indication: INSOMNIA
     Dosage: 10MG PER DAY
     Route: 048
     Dates: start: 20130723
  5. BENZALIN [Concomitant]
     Indication: INSOMNIA
     Dosage: .5MG PER DAY
     Route: 048
     Dates: start: 20130723

REACTIONS (5)
  - Bicytopenia [Recovering/Resolving]
  - Leukopenia [Recovering/Resolving]
  - Liver disorder [Recovered/Resolved]
  - Pyrexia [Recovered/Resolved]
  - Rash [Recovered/Resolved]
